FAERS Safety Report 9208764 (Version 1)
Quarter: 2013Q2

REPORT INFORMATION
  Report Type: Spontaneous
  Country: US (occurrence: US)
  Receive Date: 20130404
  Receipt Date: 20130404
  Transmission Date: 20140414
  Serious: No
  Sender: FDA-Public Use
  Company Number: US-PFIZER INC-2013105097

PATIENT
  Sex: Male
  Weight: 14.51 kg

DRUGS (1)
  1. ADVIL [Suspect]
     Dosage: 200 MG, UNK

REACTIONS (2)
  - Accidental exposure to product [Unknown]
  - Lethargy [Unknown]
